FAERS Safety Report 20416891 (Version 34)
Quarter: 2025Q3

REPORT INFORMATION
  Report Type: Report from Study
  Country: CA (occurrence: CA)
  Receive Date: 20220202
  Receipt Date: 20250821
  Transmission Date: 20251021
  Serious: Yes (Other)
  Sender: JOHNSON AND JOHNSON
  Company Number: CA-JNJFOC-20211142679

PATIENT
  Age: 73 Year
  Sex: Female
  Weight: 60 kg

DRUGS (31)
  1. REMICADE [Suspect]
     Active Substance: INFLIXIMAB
     Indication: Psoriatic arthropathy
     Dosage: BATCH NUMBER;24D027 EXPIRY DATE;31-MAR-2027
     Route: 041
     Dates: start: 20141003
  2. REMICADE [Suspect]
     Active Substance: INFLIXIMAB
     Indication: Ankylosing spondylitis
     Route: 041
  3. REMICADE [Suspect]
     Active Substance: INFLIXIMAB
     Indication: Rheumatoid arthritis
     Dosage: ON 13-APR-2022, THE PATIENT RECEIVED INFLIXIMAB INFUSION
     Route: 041
     Dates: start: 20140903
  4. REMICADE [Suspect]
     Active Substance: INFLIXIMAB
     Route: 041
  5. REMICADE [Suspect]
     Active Substance: INFLIXIMAB
     Route: 041
  6. REMICADE [Suspect]
     Active Substance: INFLIXIMAB
     Route: 041
  7. REMICADE [Suspect]
     Active Substance: INFLIXIMAB
     Route: 041
  8. REMICADE [Suspect]
     Active Substance: INFLIXIMAB
     Route: 041
  9. REMICADE [Suspect]
     Active Substance: INFLIXIMAB
     Route: 041
  10. REMICADE [Suspect]
     Active Substance: INFLIXIMAB
     Route: 041
     Dates: start: 20141003
  11. REMICADE [Suspect]
     Active Substance: INFLIXIMAB
     Route: 041
  12. REMICADE [Suspect]
     Active Substance: INFLIXIMAB
     Route: 041
     Dates: start: 20141003
  13. REMICADE [Suspect]
     Active Substance: INFLIXIMAB
     Route: 041
     Dates: start: 20241003
  14. METHOTREXATE [Concomitant]
     Active Substance: METHOTREXATE
     Indication: Product used for unknown indication
     Route: 048
  15. LEUCOVORIN [Concomitant]
     Active Substance: LEUCOVORIN\LEUCOVORIN CALCIUM
     Indication: Product used for unknown indication
     Route: 048
  16. LEUCOVORIN [Concomitant]
     Active Substance: LEUCOVORIN\LEUCOVORIN CALCIUM
     Route: 048
  17. GLUCOPHAGE [Concomitant]
     Active Substance: METFORMIN HYDROCHLORIDE
     Indication: Product used for unknown indication
     Route: 048
  18. GLUCOPHAGE [Concomitant]
     Active Substance: METFORMIN HYDROCHLORIDE
     Route: 048
  19. GLUCOPHAGE [Concomitant]
     Active Substance: METFORMIN HYDROCHLORIDE
     Route: 048
  20. KEPPRA [Concomitant]
     Active Substance: LEVETIRACETAM
     Indication: Product used for unknown indication
     Route: 048
  21. KEPPRA [Concomitant]
     Active Substance: LEVETIRACETAM
     Route: 048
  22. MYRBETRIQ [Concomitant]
     Active Substance: MIRABEGRON
     Indication: Product used for unknown indication
     Route: 048
  23. LIPITOR [Concomitant]
     Active Substance: ATORVASTATIN CALCIUM
     Indication: Product used for unknown indication
     Route: 048
  24. ONGLYZA [Concomitant]
     Active Substance: SAXAGLIPTIN HYDROCHLORIDE
     Indication: Product used for unknown indication
     Route: 048
  25. ATORVASTATIN [Concomitant]
     Active Substance: ATORVASTATIN
     Indication: Product used for unknown indication
     Route: 048
  26. PROLIA [Concomitant]
     Active Substance: DENOSUMAB
     Indication: Product used for unknown indication
     Route: 058
  27. CORTICOSTEROID NOS [Concomitant]
     Active Substance: CORTICOSTEROID NOS
     Indication: Product used for unknown indication
     Route: 061
  28. CLOBETASOL [Concomitant]
     Active Substance: CLOBETASOL
     Indication: Product used for unknown indication
     Route: 061
  29. ESTRONE [Concomitant]
     Active Substance: ESTRONE
     Indication: Product used for unknown indication
     Route: 067
  30. MAGNESIUM [Concomitant]
     Active Substance: MAGNESIUM
     Indication: Product used for unknown indication
     Route: 048
  31. CALCIUM\VITAMIN D [Concomitant]
     Active Substance: CALCIUM\VITAMIN D
     Indication: Product used for unknown indication
     Route: 048

REACTIONS (30)
  - Endometriosis [Not Recovered/Not Resolved]
  - Salpingo-oophorectomy [Recovering/Resolving]
  - Foot fracture [Unknown]
  - Hypertonic bladder [Unknown]
  - Urinary incontinence [Unknown]
  - Pain in extremity [Not Recovered/Not Resolved]
  - Psoriatic arthropathy [Not Recovered/Not Resolved]
  - Dyspnoea [Unknown]
  - Limb discomfort [Not Recovered/Not Resolved]
  - Arthritis [Not Recovered/Not Resolved]
  - Arthralgia [Not Recovered/Not Resolved]
  - Pain in extremity [Unknown]
  - Sciatica [Recovering/Resolving]
  - Oral fungal infection [Recovered/Resolved]
  - Animal scratch [Recovering/Resolving]
  - Back pain [Recovering/Resolving]
  - Urinary tract infection [Unknown]
  - Asthenia [Unknown]
  - Limb injury [Unknown]
  - Gait disturbance [Not Recovered/Not Resolved]
  - Product container issue [Unknown]
  - Insomnia [Unknown]
  - Hypertension [Unknown]
  - Peripheral coldness [Unknown]
  - Off label use [Unknown]
  - Upper respiratory tract infection [Recovering/Resolving]
  - Nerve compression [Unknown]
  - Fatigue [Not Recovered/Not Resolved]
  - Arthralgia [Unknown]
  - Hypoaesthesia [Unknown]

NARRATIVE: CASE EVENT DATE: 20211102
